FAERS Safety Report 7323417-4 (Version None)
Quarter: 2011Q1

REPORT INFORMATION
  Report Type: 
  Country: None (occurrence: None)
  Receive Date: 20110203
  Receipt Date: 20110119
  Transmission Date: 20110831
  Serious: Yes (Hospitalization, Other)
  Sender: FDA-Public Use
  Company Number: 2011PROUSA00179

PATIENT
  Age: 69 Year
  Sex: Male
  Weight: 63 kg

DRUGS (15)
  1. LOMOTIL [Concomitant]
  2. ZOCOR [Concomitant]
  3. PRILOSEC (OMEPRAZOLE) [Concomitant]
  4. COUMADIN [Suspect]
  5. PAMIDRONATE DISODIUM [Concomitant]
  6. MAGACE (MEGESTROL ACETATE) [Concomitant]
  7. SENOKOT (SENNA ALEXANDRINA) [Concomitant]
  8. PROVENGE [Suspect]
     Indication: PROSTATE CANCER METASTATIC
     Dosage: 250ML, SINGLE; INTRAVENOUS
     Route: 011
     Dates: start: 20100930, end: 20100930
  9. PROVENGE [Suspect]
     Indication: PROSTATE CANCER METASTATIC
     Dosage: 250ML, SINGLE; INTRAVENOUS
     Route: 011
     Dates: start: 20100823, end: 20100823
  10. PROVENGE [Suspect]
     Indication: PROSTATE CANCER METASTATIC
     Dosage: 250ML, SINGLE; INTRAVENOUS
     Route: 011
     Dates: start: 20100916, end: 20100916
  11. LUPRON [Concomitant]
  12. LISINOPRIL [Concomitant]
  13. ALLOPURINOL [Concomitant]
  14. ZEMPLAR [Concomitant]
  15. CARAFATE [Concomitant]

REACTIONS (19)
  - METASTASES TO BONE [None]
  - TOXICITY TO VARIOUS AGENTS [None]
  - FATIGUE [None]
  - DUODENAL ULCER [None]
  - ARTHRALGIA [None]
  - SUBDURAL HAEMATOMA [None]
  - NAUSEA [None]
  - INTERNATIONAL NORMALISED RATIO INCREASED [None]
  - NEOPLASM MALIGNANT [None]
  - PATHOLOGICAL FRACTURE [None]
  - ASTHENIA [None]
  - FALL [None]
  - PROSTATE CANCER METASTATIC [None]
  - RENAL FAILURE ACUTE [None]
  - SEPSIS [None]
  - ERUCTATION [None]
  - BACK PAIN [None]
  - ANAEMIA [None]
  - MENTAL STATUS CHANGES [None]
